FAERS Safety Report 12940823 (Version 3)
Quarter: 2024Q1

REPORT INFORMATION
  Report Type: Spontaneous
  Country: US (occurrence: US)
  Receive Date: 20161115
  Receipt Date: 20240319
  Transmission Date: 20240409
  Serious: No
  Sender: FDA-Public Use
  Company Number: US-JNJFOC-20161103796

PATIENT
  Sex: Male

DRUGS (2)
  1. RISPERDAL [Suspect]
     Active Substance: RISPERIDONE
     Indication: Mood swings
     Dosage: IN VARYING FREQUENCIES OF EVERY MORNING, EVERY EVENING OR THRICE DAILY
     Route: 048
     Dates: start: 1999, end: 2008
  2. RISPERDAL [Suspect]
     Active Substance: RISPERIDONE
     Indication: Oppositional defiant disorder

REACTIONS (3)
  - Gynaecomastia [Unknown]
  - Abnormal weight gain [Unknown]
  - Off label use [Unknown]

NARRATIVE: CASE EVENT DATE: 19990101
